FAERS Safety Report 15928201 (Version 3)
Quarter: 2019Q3

REPORT INFORMATION
  Report Type: Spontaneous
  Country: JP (occurrence: JP)
  Receive Date: 20190206
  Receipt Date: 20190724
  Transmission Date: 20191004
  Serious: Yes (Death, Life-Threatening)
  Sender: FDA-Public Use
  Company Number: JP-ROCHE-2260988

PATIENT
  Age: 88 Year
  Sex: Female

DRUGS (8)
  1. ALLOPURINOL. [Concomitant]
     Active Substance: ALLOPURINOL
     Route: 048
     Dates: start: 20190127, end: 20190129
  2. URSODEOXYCHOLIC ACID [Concomitant]
     Active Substance: URSODIOL
     Route: 048
     Dates: start: 20190127, end: 20190129
  3. ATORVASTATIN [Concomitant]
     Active Substance: ATORVASTATIN
     Route: 048
     Dates: start: 20190127, end: 20190129
  4. ASPIRIN [ACETYLSALICYLIC ACID] [Concomitant]
     Active Substance: ASPIRIN
     Route: 048
     Dates: start: 20190127, end: 20190129
  5. FAMOTIDINE. [Concomitant]
     Active Substance: FAMOTIDINE
     Route: 048
     Dates: start: 20190127, end: 20190129
  6. XOFLUZA [Suspect]
     Active Substance: BALOXAVIR MARBOXIL
     Indication: INFLUENZA
     Route: 048
     Dates: start: 20190126, end: 20190127
  7. DONEPEZIL HYDROCHLORIDE. [Concomitant]
     Active Substance: DONEPEZIL HYDROCHLORIDE
     Route: 048
     Dates: start: 20190127, end: 20190129
  8. EPLERENONE. [Concomitant]
     Active Substance: EPLERENONE
     Route: 048
     Dates: start: 20190127, end: 20190129

REACTIONS (3)
  - Respiratory failure [Not Recovered/Not Resolved]
  - Product prescribing error [Unknown]
  - Bile duct cancer [Fatal]

NARRATIVE: CASE EVENT DATE: 20190128
